FAERS Safety Report 8779243 (Version 1)
Quarter: 2012Q4

REPORT INFORMATION
  Report Type: Report from Study
  Country: CA (occurrence: CA)
  Receive Date: 20120912
  Receipt Date: 20120912
  Transmission Date: 20130627
  Serious: Yes (Other)
  Sender: FDA-Public Use
  Company Number: CA-ROCHE-670332

PATIENT
  Age: 60 Year
  Sex: Male
  Weight: 79.45 kg

DRUGS (9)
  1. MABTHERA [Suspect]
     Indication: CHRONIC LYMPHOCYTIC LEUKAEMIA
     Dosage: FORM: INFUSION, DOSE:375MG/M2
     Route: 042
     Dates: start: 20091120, end: 20091120
  2. MABTHERA [Suspect]
     Dosage: FREQUENCY: WEEKLY
     Route: 042
  3. MABTHERA [Suspect]
     Route: 042
     Dates: start: 20110124, end: 20110124
  4. MABTHERA [Suspect]
     Dosage: INFUSION ON 07B FEB 2011 WAS CANCELLED DUE TO INFECTION
     Route: 042
  5. TYLENOL [Concomitant]
     Indication: PREMEDICATION
     Route: 065
     Dates: start: 20091120, end: 20091120
  6. BENADRYL [Concomitant]
     Indication: PREMEDICATION
     Route: 042
     Dates: start: 20091120, end: 20091120
  7. SOLU-MEDROL [Concomitant]
     Indication: PREMEDICATION
     Route: 065
     Dates: start: 20091120, end: 20091120
  8. LIPITOR [Concomitant]
     Route: 065
  9. SEPTRA [Concomitant]
     Route: 065

REACTIONS (16)
  - Infusion related reaction [Recovered/Resolved]
  - Abdominal pain upper [Recovered/Resolved]
  - Urticaria [Recovered/Resolved]
  - Pruritus [Recovered/Resolved]
  - Anxiety [Not Recovered/Not Resolved]
  - Blood pressure increased [Not Recovered/Not Resolved]
  - Chest pain [Not Recovered/Not Resolved]
  - Hyperhidrosis [Not Recovered/Not Resolved]
  - Pallor [Not Recovered/Not Resolved]
  - Retching [Not Recovered/Not Resolved]
  - Syncope [Not Recovered/Not Resolved]
  - Tremor [Not Recovered/Not Resolved]
  - Platelet count decreased [Unknown]
  - Lung infection [Not Recovered/Not Resolved]
  - Flushing [Recovered/Resolved]
  - Heart rate increased [Recovered/Resolved]
